FAERS Safety Report 9257581 (Version 1)
Quarter: 2013Q1

REPORT INFORMATION
  Report Type: Spontaneous
  Country: US (occurrence: None)
  Receive Date: 20121212
  Receipt Date: 20121212
  Transmission Date: 20140127
  Serious: No
  Sender: FDA-Public Use
  Company Number: 1208USA011519

PATIENT
  Sex: Male

DRUGS (1)
  1. VICTRELIS (BOCEPREVIR) CAPSULE, 200MG [Suspect]
     Route: 048
     Dates: start: 20120702

REACTIONS (3)
  - Incorrect dose administered [None]
  - Product quality issue [None]
  - No adverse event [None]
